FAERS Safety Report 6279368-X (Version None)
Quarter: 2009Q3

REPORT INFORMATION
  Report Type: 
  Country: None (occurrence: None)
  Receive Date: 20090723
  Receipt Date: 20090713
  Transmission Date: 20100115
  Serious: Yes (Hospitalization)
  Sender: FDA-Public Use
  Company Number: FR-EISAI INC.-E3810-02997-SPO-FR

PATIENT
  Sex: Male

DRUGS (5)
  1. PARIET (RABEPRAZOLE) [Suspect]
     Route: 048
     Dates: start: 20061107, end: 20090528
  2. PRITOR [Suspect]
     Dosage: 80/12.5MG
     Route: 065
     Dates: start: 20070101, end: 20090528
  3. PROZAC [Suspect]
     Route: 065
     Dates: start: 20060101, end: 20090528
  4. CRESTOR [Concomitant]
     Dates: start: 20061101
  5. TEMERIT [Concomitant]
     Dates: start: 20061101

REACTIONS (1)
  - HYPONATRAEMIA [None]
